FAERS Safety Report 9467497 (Version 1)
Quarter: 2013Q3

REPORT INFORMATION
  Report Type: Spontaneous
  Country: US (occurrence: US)
  Receive Date: 20130821
  Receipt Date: 20130821
  Transmission Date: 20140515
  Serious: No
  Sender: FDA-Public Use
  Company Number: US-009507513-1308USA007041

PATIENT
  Sex: Female

DRUGS (2)
  1. NUVARING [Suspect]
     Indication: CONTRACEPTION
     Dosage: UNK
     Route: 067
     Dates: start: 201307
  2. NUVARING [Suspect]
     Dosage: UNK
     Route: 067
     Dates: start: 201211, end: 201305

REACTIONS (4)
  - Unintended pregnancy [Unknown]
  - Inappropriate schedule of drug administration [Unknown]
  - Inappropriate schedule of drug administration [Unknown]
  - Incorrect drug administration duration [Unknown]
